FAERS Safety Report 24963890 (Version 3)
Quarter: 2025Q1

REPORT INFORMATION
  Report Type: Spontaneous
  Country: DK (occurrence: DK)
  Receive Date: 20250213
  Receipt Date: 20250227
  Transmission Date: 20250409
  Serious: Yes (Other)
  Sender: ROCHE
  Company Number: DK-002147023-NVSC2025DK013045

PATIENT
  Age: 67 Year
  Sex: Female

DRUGS (15)
  1. XOLAIR [Suspect]
     Active Substance: OMALIZUMAB
     Indication: Urticaria
     Dosage: 150 MG, QMO (DOSE 2 X 150 MG MONTHLY) (ONE IN EACH THIGH).
     Route: 065
     Dates: start: 2024
  2. XOLAIR [Suspect]
     Active Substance: OMALIZUMAB
     Dosage: 150 MG, QMO (DOSE 2 X 150 MG MONTHLY) (ONE IN EACH THIGH).
     Route: 065
     Dates: start: 20250123
  3. MYFENAX [Concomitant]
     Active Substance: MYCOPHENOLATE MOFETIL
     Indication: Renal transplant
     Dosage: 250 MG, BID (1 MORNING, 1 EVENING)
     Route: 065
  4. TACROLIMUS [Concomitant]
     Active Substance: TACROLIMUS
     Indication: Renal transplant
     Dosage: 1 MG, BID (1 MORNING, 1 EVENING)
     Route: 065
  5. LOSARTAN POTASSIUM [Concomitant]
     Active Substance: LOSARTAN POTASSIUM
     Indication: Blood pressure measurement
     Dosage: 50 MG, BID (1 MORNING, 1 EVENING)
     Route: 065
  6. Ulcerex [Concomitant]
     Indication: Gastric ulcer
     Dosage: 20 MG, QD (1 EVENING)
     Route: 065
  7. BUMETANIDE [Concomitant]
     Active Substance: BUMETANIDE
     Indication: Polyuria
     Route: 065
  8. SODIUM CARBONATE [Concomitant]
     Active Substance: SODIUM CARBONATE
     Indication: Product used for unknown indication
     Dosage: 500 MG, BID (1 MORNING, 1 EVENING)
     Route: 065
  9. MIRABEGRON [Concomitant]
     Active Substance: MIRABEGRON
     Indication: Hypertonic bladder
     Dosage: 25 MG, QD (1 MORNING) (EXTENDED RELEASE)
     Route: 065
  10. Unikalk forte [Concomitant]
     Indication: Product used for unknown indication
     Dosage: UNK, QD (1 AT LUNCH) (400 MG CALCIUM + 19 MICROGRAM D3- VITAMIN)
     Route: 065
  11. VAGIFEM [Concomitant]
     Active Substance: ESTRADIOL
     Indication: Product used for unknown indication
     Dosage: UNK, Q3W (3X WEEKLY)
     Route: 065
  12. GABAPENTIN [Concomitant]
     Active Substance: GABAPENTIN
     Indication: Urticaria
     Route: 065
  13. LOSARTAN [Concomitant]
     Active Substance: LOSARTAN
     Indication: Product used for unknown indication
     Dosage: 50 MG, BID (1 MORNING, 1 EVENING)
     Route: 065
  14. PROGRAF [Concomitant]
     Active Substance: TACROLIMUS
     Indication: Renal transplant
     Dosage: 50 MG, BID (1 MORNING, 1 EVENING)
     Route: 065
  15. CELLCEPT [Concomitant]
     Active Substance: MYCOPHENOLATE MOFETIL
     Indication: Renal transplant
     Dosage: 50 MG, BID (1 MORNING, 1 EVENING)
     Route: 065

REACTIONS (5)
  - Syncope [Recovered/Resolved]
  - Hypertension [Unknown]
  - Hypotension [Recovered/Resolved]
  - Dizziness [Unknown]
  - Seasonal allergy [Unknown]

NARRATIVE: CASE EVENT DATE: 20240101
